FAERS Safety Report 6660749-7 (Version None)
Quarter: 2010Q1

REPORT INFORMATION
  Report Type: 
  Country: None (occurrence: None)
  Receive Date: 20100326
  Receipt Date: 20100315
  Transmission Date: 20100710
  Serious: Yes (Other)
  Sender: FDA-Public Use
  Company Number: 538170

PATIENT
  Age: 69 Year
  Sex: Male
  Weight: 99.1 kg

DRUGS (6)
  1. FLUDARABINE PHOSPHATE [Suspect]
     Indication: CHRONIC LYMPHOCYTIC LEUKAEMIA
     Dosage: MONTH, INTRAVENOUS
     Route: 042
     Dates: start: 20090723, end: 20091217
  2. CYCLOPHOSPHAMIDE [Suspect]
     Indication: CHRONIC LYMPHOCYTIC LEUKAEMIA
     Dosage: MONTH, INTRAVENOUS
     Route: 042
     Dates: start: 20090723, end: 20091217
  3. (RITUXIMAB) [Suspect]
     Indication: CHRONIC LYMPHOCYTIC LEUKAEMIA
     Dosage: 375 MG/M2, INTRAVENOUS ; 500 MG/M2
     Route: 042
     Dates: start: 20090723, end: 20091217
  4. ALLOPURINOL [Concomitant]
  5. COTRIM [Concomitant]
  6. (DOMPERIDONE) [Concomitant]

REACTIONS (2)
  - MEGAKARYOCYTES ABNORMAL [None]
  - MYELODYSPLASTIC SYNDROME [None]
